FAERS Safety Report 14721601 (Version 1)
Quarter: 2018Q2

REPORT INFORMATION
  Report Type: Spontaneous
  Country: CN (occurrence: CN)
  Receive Date: 20180405
  Receipt Date: 20180405
  Transmission Date: 20180711
  Serious: Yes (Other)
  Sender: FDA-Public Use
  Company Number: CN-PURDUE PHARMA-GBR-2018-0054556

PATIENT
  Age: 62 Year
  Sex: Male
  Weight: 49 kg

DRUGS (2)
  1. MS CONTIN [Suspect]
     Active Substance: MORPHINE SULFATE
     Dosage: 30 MG, BID
     Route: 048
     Dates: start: 20180104, end: 20180106
  2. MS CONTIN [Suspect]
     Active Substance: MORPHINE SULFATE
     Indication: ANALGESIC THERAPY
     Dosage: 60 MG, BID
     Route: 048
     Dates: start: 20180106, end: 20180116

REACTIONS (6)
  - Coma [Recovering/Resolving]
  - Cyanosis [Unknown]
  - Miosis [Unknown]
  - Respiratory depression [Recovering/Resolving]
  - Inadequate analgesia [Recovering/Resolving]
  - Altered state of consciousness [Recovering/Resolving]

NARRATIVE: CASE EVENT DATE: 20180116
